FAERS Safety Report 8854292 (Version 1)
Quarter: 2012Q4

REPORT INFORMATION
  Report Type: Spontaneous
  Country: US (occurrence: None)
  Receive Date: 20121022
  Receipt Date: 20121022
  Transmission Date: 20130627
  Serious: Yes (Hospitalization)
  Sender: FDA-Public Use
  Company Number: None

PATIENT
  Sex: Female
  Weight: 64.86 kg

DRUGS (5)
  1. RILUTEK [Suspect]
     Indication: MAJOR DEPRESSIVE DISORDER NOS
     Route: 048
     Dates: start: 20120809, end: 20121002
  2. ZOLOFT [Concomitant]
  3. PERCOSET [Concomitant]
  4. VITAMIN D [Concomitant]
  5. RILUZOLE/PLACEBO [Concomitant]

REACTIONS (1)
  - Transient global amnesia [None]
